FAERS Safety Report 16870850 (Version 3)
Quarter: 2020Q4

REPORT INFORMATION
  Report Type: Report from Study
  Country: US (occurrence: US)
  Receive Date: 20190930
  Receipt Date: 20201229
  Transmission Date: 20210113
  Serious: No
  Sender: FDA-Public Use
  Company Number: US-CLOVIS ONCOLOGY-CLO-2019-001800

PATIENT
  Age: 48 Year
  Sex: Female

DRUGS (5)
  1. RUBRACA [Suspect]
     Active Substance: RUCAPARIB CAMSYLATE
     Dosage: UNK
     Dates: start: 20190301
  2. RUBRACA [Suspect]
     Active Substance: RUCAPARIB CAMSYLATE
     Indication: OVARIAN CANCER
     Dosage: 200 MG, BID
     Route: 048
     Dates: start: 20190831
  3. RUBRACA [Suspect]
     Active Substance: RUCAPARIB CAMSYLATE
     Dosage: 200 MG, BID
     Route: 048
     Dates: start: 20190829
  4. RUBRACA [Suspect]
     Active Substance: RUCAPARIB CAMSYLATE
     Dosage: UNK
  5. ATIVAN [Concomitant]
     Active Substance: LORAZEPAM
     Indication: ANXIETY
     Dosage: 1 MG, PRN

REACTIONS (25)
  - Facial spasm [Unknown]
  - Somnolence [Unknown]
  - Flatulence [Not Recovered/Not Resolved]
  - Alopecia [Not Recovered/Not Resolved]
  - Initial insomnia [Unknown]
  - Insomnia [Unknown]
  - Depression [Unknown]
  - Malaise [Unknown]
  - Decreased appetite [Unknown]
  - Dysarthria [Unknown]
  - Hair growth abnormal [Unknown]
  - Weight increased [Unknown]
  - Anxiety [Unknown]
  - Asthenia [Unknown]
  - Hypotension [Unknown]
  - Skin discolouration [Not Recovered/Not Resolved]
  - Skin discolouration [Unknown]
  - Nausea [Not Recovered/Not Resolved]
  - Fatigue [Not Recovered/Not Resolved]
  - Constipation [Recovered/Resolved]
  - Wound dehiscence [Unknown]
  - Diarrhoea [Not Recovered/Not Resolved]
  - Abdominal symptom [Unknown]
  - Diarrhoea [Recovered/Resolved]
  - Product dose omission issue [Unknown]

NARRATIVE: CASE EVENT DATE: 2019
